FAERS Safety Report 14005412 (Version 3)
Quarter: 2017Q4

REPORT INFORMATION
  Report Type: Report from Study
  Country: US (occurrence: US)
  Receive Date: 20170922
  Receipt Date: 20171117
  Transmission Date: 20180321
  Serious: Yes (Death, Hospitalization, Other)
  Sender: FDA-Public Use
  Company Number: US-BAYER-2017-136859

PATIENT
  Age: 72 Year
  Sex: Male
  Weight: 99.77 kg

DRUGS (3)
  1. ADEMPAS [Suspect]
     Active Substance: RIOCIGUAT
     Indication: PULMONARY HYPERTENSION
     Dosage: 1 MG, TID
     Route: 048
  2. APIXABAN [Concomitant]
     Active Substance: APIXABAN
     Dosage: UNK
  3. ADEMPAS [Suspect]
     Active Substance: RIOCIGUAT
     Indication: PULMONARY HYPERTENSION
     Dosage: 0.5 MG, TID
     Route: 048
     Dates: start: 20170616

REACTIONS (19)
  - Neck pain [Not Recovered/Not Resolved]
  - Musculoskeletal pain [Unknown]
  - Dyspnoea [Not Recovered/Not Resolved]
  - Bursitis [Unknown]
  - Drug dose omission [None]
  - Pyrexia [None]
  - Dizziness [Not Recovered/Not Resolved]
  - Death [Fatal]
  - Headache [Unknown]
  - Headache [None]
  - Fatigue [Not Recovered/Not Resolved]
  - Asthenia [Unknown]
  - Blood glucose increased [Unknown]
  - Dyspnoea exertional [Not Recovered/Not Resolved]
  - Flushing [None]
  - Pain in extremity [Unknown]
  - Chest pain [Unknown]
  - Depression [Unknown]
  - Osteomyelitis [Unknown]

NARRATIVE: CASE EVENT DATE: 2017
